FAERS Safety Report 7057521-5 (Version None)
Quarter: 2010Q4

REPORT INFORMATION
  Report Type: 
  Country: None (occurrence: None)
  Receive Date: 20101022
  Receipt Date: 20101007
  Transmission Date: 20110411
  Serious: Yes (Other)
  Sender: FDA-Public Use
  Company Number: HU-ROCHE-731937

PATIENT
  Sex: Female
  Weight: 94.5 kg

DRUGS (1)
  1. METHOXY POLYETHYLENE GLYCOL-EPOETIN BETA [Suspect]
     Dosage: LAST DOSE PRIOR TO SAE: 20 JAN 2010
     Route: 042
     Dates: start: 20090416

REACTIONS (1)
  - MULTIPLE MYELOMA [None]
